FAERS Safety Report 8878516 (Version 1)
Quarter: 2012Q4

REPORT INFORMATION
  Report Type: 
  Country: IT (occurrence: IT)
  Receive Date: 20121030
  Receipt Date: 20121030
  Transmission Date: 20130627
  Serious: Yes (Other)
  Sender: FDA-Public Use
  Company Number: IT-JNJFOC-20121014537

PATIENT
  Sex: Female

DRUGS (3)
  1. TAPENTADOL HYDROCHLORIDE [Suspect]
     Indication: NAUSEA
     Route: 048
  2. METOCLOPRAMIDE [Interacting]
     Indication: NAUSEA
     Route: 065
  3. OTHER CHEMOTHERAPEUTICS [Concomitant]
     Route: 065

REACTIONS (2)
  - Extrapyramidal disorder [Unknown]
  - Drug interaction [Unknown]
